FAERS Safety Report 10761725 (Version 1)
Quarter: 2015Q1

REPORT INFORMATION
  Report Type: Spontaneous
  Country: US (occurrence: None)
  Receive Date: 20150203
  Receipt Date: 20150203
  Transmission Date: 20150721
  Serious: Yes (Other)
  Sender: FDA-Public Use
  Company Number: None

PATIENT
  Age: 73 Year
  Sex: Male

DRUGS (1)
  1. MUPIROCIN OINTMENT [Suspect]
     Active Substance: MUPIROCIN
     Indication: SKIN EROSION
     Route: 061
     Dates: start: 20150122

REACTIONS (2)
  - Sensation of foreign body [None]
  - Skin burning sensation [None]

NARRATIVE: CASE EVENT DATE: 20150122
